FAERS Safety Report 22278679 (Version 4)
Quarter: 2024Q1

REPORT INFORMATION
  Report Type: Spontaneous
  Country: US (occurrence: US)
  Receive Date: 20230503
  Receipt Date: 20240207
  Transmission Date: 20240410
  Serious: Yes (Other)
  Sender: FDA-Public Use
  Company Number: US-SANOFI-01596067

PATIENT
  Sex: Female

DRUGS (1)
  1. DULCOLAX (BISACODYL) [Suspect]
     Active Substance: BISACODYL
     Dosage: UNK
     Route: 054
     Dates: start: 2023

REACTIONS (7)
  - Haemorrhage [Unknown]
  - Rectal haemorrhage [Unknown]
  - Haematochezia [Not Recovered/Not Resolved]
  - Application site pain [Unknown]
  - Mucous stools [Not Recovered/Not Resolved]
  - Anxiety [Unknown]
  - Application site burn [Unknown]

NARRATIVE: CASE EVENT DATE: 20230101
